FAERS Safety Report 7087766-X (Version None)
Quarter: 2010Q4

REPORT INFORMATION
  Report Type: 
  Country: None (occurrence: None)
  Receive Date: 20101108
  Receipt Date: 20101026
  Transmission Date: 20110411
  Serious: Yes (Hospitalization, Other)
  Sender: FDA-Public Use
  Company Number: US-ELI_LILLY_AND_COMPANY-US201010006697

PATIENT
  Sex: Female

DRUGS (4)
  1. HUMALOG MIX 75/25 [Suspect]
     Indication: DIABETES MELLITUS
     Dosage: 30 U, EACH MORNING
  2. HUMALOG [Suspect]
  3. LANTUS [Concomitant]
     Dosage: 30 U, EACH MORNING
  4. COUMADIN [Concomitant]
     Dosage: UNK, AS NEEDED

REACTIONS (2)
  - CARDIAC OPERATION [None]
  - MYOCARDIAL INFARCTION [None]
